FAERS Safety Report 20771119 (Version 1)
Quarter: 2022Q2

REPORT INFORMATION
  Report Type: Spontaneous
  Country: US (occurrence: US)
  Receive Date: 20220429
  Receipt Date: 20220429
  Transmission Date: 20220721
  Serious: No
  Sender: FDA-Public Use
  Company Number: US-TEVA-2022-US-2026071

PATIENT
  Age: 35 Year
  Sex: Female
  Weight: 90.7 kg

DRUGS (4)
  1. AJOVY [Suspect]
     Active Substance: FREMANEZUMAB-VFRM
     Route: 065
  2. AJOVY [Suspect]
     Active Substance: FREMANEZUMAB-VFRM
  3. NURTEC ODT [Suspect]
     Active Substance: RIMEGEPANT SULFATE
     Indication: Migraine
     Dosage: AS NEEDED
     Route: 048
     Dates: start: 2022
  4. UBRELVY [Concomitant]
     Active Substance: UBROGEPANT
     Indication: Migraine

REACTIONS (4)
  - Therapeutic response shortened [Unknown]
  - Insomnia [Unknown]
  - Therapeutic product effect delayed [Unknown]
  - Insurance issue [Unknown]

NARRATIVE: CASE EVENT DATE: 20220101
